FAERS Safety Report 9558222 (Version 3)
Quarter: 2015Q1

REPORT INFORMATION
  Report Type: Spontaneous
  Country: US (occurrence: US)
  Receive Date: 20130926
  Receipt Date: 20150102
  Transmission Date: 20150721
  Serious: Yes (Death, Hospitalization, Disabling, Other)
  Sender: FDA-Public Use
  Company Number: US-009507513-1309USA012787

PATIENT
  Sex: Male

DRUGS (2)
  1. JANUMET [Suspect]
     Active Substance: METFORMIN HYDROCHLORIDE\SITAGLIPTIN PHOSPHATE
     Indication: TYPE 2 DIABETES MELLITUS
     Dosage: 50 MG/ 1000 MG, UNK
     Route: 048
  2. JANUVIA [Suspect]
     Active Substance: SITAGLIPTIN PHOSPHATE
     Indication: TYPE 2 DIABETES MELLITUS
     Dosage: 100 MG, UNK
     Route: 048

REACTIONS (18)
  - Hypokalaemia [Unknown]
  - Hyperlipidaemia [Unknown]
  - Metastases to liver [Unknown]
  - Hypertension [Unknown]
  - Constipation [Unknown]
  - Coronary artery bypass [Unknown]
  - Coronary artery bypass [Unknown]
  - Vitamin D deficiency [Unknown]
  - Hypoglycaemia [Unknown]
  - Dyspnoea [Unknown]
  - Wheezing [Unknown]
  - Knee operation [Unknown]
  - Back pain [Recovering/Resolving]
  - Pancreatic neuroendocrine tumour metastatic [Fatal]
  - Hyperglycaemia [Unknown]
  - Postoperative wound infection [Unknown]
  - Adrenal mass [Unknown]
  - Blood magnesium decreased [Unknown]

NARRATIVE: CASE EVENT DATE: 201006
